FAERS Safety Report 5709638-2 (Version None)
Quarter: 2008Q2

REPORT INFORMATION
  Report Type: 
  Country: None (occurrence: None)
  Receive Date: 20080418
  Receipt Date: 20080408
  Transmission Date: 20081010
  Serious: Yes (Hospitalization)
  Sender: FDA-Public Use
  Company Number: B0516538A

PATIENT
  Age: 57 Year
  Sex: Female

DRUGS (8)
  1. ZANTAC [Suspect]
     Indication: PREMEDICATION
     Route: 042
     Dates: start: 20080103, end: 20080103
  2. TAXOL [Suspect]
     Dosage: 127MG PER DAY
     Route: 042
     Dates: start: 20080103, end: 20080103
  3. METHYLPREDNISOLONE [Suspect]
     Indication: PREMEDICATION
     Route: 042
     Dates: start: 20080103, end: 20080103
  4. POLARAMINE [Suspect]
     Indication: PREMEDICATION
     Route: 042
     Dates: start: 20080103, end: 20080103
  5. ARIXTRA [Concomitant]
     Dosage: 5MG PER DAY
     Route: 058
     Dates: start: 20071228
  6. LANREOTIDE [Concomitant]
  7. ATARAX [Concomitant]
     Dosage: 25MG PER DAY
  8. STILNOX [Concomitant]
     Dosage: 5MG PER DAY

REACTIONS (2)
  - RASH ERYTHEMATOUS [None]
  - SKIN EXFOLIATION [None]
